FAERS Safety Report 10257612 (Version 1)
Quarter: 2014Q2

REPORT INFORMATION
  Report Type: Spontaneous
  Country: US (occurrence: None)
  Receive Date: 20140623
  Receipt Date: 20140623
  Transmission Date: 20141212
  Serious: Yes (Hospitalization)
  Sender: FDA-Public Use
  Company Number: None

PATIENT
  Age: 92 Year
  Sex: Male
  Weight: 62.3 kg

DRUGS (2)
  1. WARFARIN [Suspect]
     Indication: ATRIAL FIBRILLATION
     Route: 048
     Dates: start: 20060103, end: 20140606
  2. CIPROFLOXACIN [Suspect]
     Route: 048
     Dates: start: 20140528, end: 20140530

REACTIONS (2)
  - Urinary tract infection [None]
  - International normalised ratio increased [None]
